FAERS Safety Report 14263135 (Version 1)
Quarter: 2017Q4

REPORT INFORMATION
  Report Type: Spontaneous
  Country: CA (occurrence: CA)
  Receive Date: 20171208
  Receipt Date: 20171208
  Transmission Date: 20180321
  Serious: Yes (Death)
  Sender: FDA-Public Use
  Company Number: CA-PFIZER INC-2017366718

PATIENT
  Age: 76 Year
  Sex: Female

DRUGS (8)
  1. VITAMIN D /00107901/ [Concomitant]
     Active Substance: ERGOCALCIFEROL
  2. ASACOL [Concomitant]
     Active Substance: MESALAMINE
     Dosage: 800 MG, 2X/DAY
  3. ASA [Concomitant]
     Active Substance: ASPIRIN
     Dosage: 81 MG, UNK
  4. PIOGLITAZONE. [Concomitant]
     Active Substance: PIOGLITAZONE
  5. LETROZOLE. [Concomitant]
     Active Substance: LETROZOLE
  6. RISEDRONATE [Concomitant]
     Active Substance: RISEDRONATE SODIUM
  7. CALCIUM [Concomitant]
     Active Substance: CALCIUM
  8. IBRANCE [Suspect]
     Active Substance: PALBOCICLIB
     Indication: BREAST CANCER METASTATIC
     Dosage: 125 MG, DAILY FOR 21 DAYS, STOP FOR 7 DAYS THEN REPEAT AS DIRECTED
     Route: 048
     Dates: start: 20170327

REACTIONS (2)
  - Death [Fatal]
  - Rash [Unknown]

NARRATIVE: CASE EVENT DATE: 201704
